FAERS Safety Report 18499622 (Version 1)
Quarter: 2020Q4

REPORT INFORMATION
  Report Type: Spontaneous
  Country: AU (occurrence: AU)
  Receive Date: 20201112
  Receipt Date: 20201112
  Transmission Date: 20210114
  Serious: Yes (Hospitalization, Other)
  Sender: FDA-Public Use
  Company Number: AU-009507513-2011AUS007060

PATIENT
  Age: 66 Year
  Sex: Female

DRUGS (9)
  1. POSACONAZOLE [Suspect]
     Active Substance: POSACONAZOLE
     Dosage: 200 MG ALTERNATING WITH 300 MG DAILY
     Route: 048
     Dates: start: 20181024, end: 20181126
  2. POSACONAZOLE [Suspect]
     Active Substance: POSACONAZOLE
     Dosage: 300 MG DAILY
     Route: 048
     Dates: start: 20170509, end: 20170509
  3. POSACONAZOLE [Suspect]
     Active Substance: POSACONAZOLE
     Indication: SCEDOSPORIUM INFECTION
     Dosage: 300 MG DAILY
     Route: 048
     Dates: start: 20170508
  4. POSACONAZOLE [Suspect]
     Active Substance: POSACONAZOLE
     Dosage: 200 MG DAILY
     Route: 048
     Dates: start: 20170510, end: 20170511
  5. POSACONAZOLE [Suspect]
     Active Substance: POSACONAZOLE
     Dosage: 100 MG DAILY
     Route: 048
     Dates: start: 20170512, end: 20170515
  6. POSACONAZOLE [Suspect]
     Active Substance: POSACONAZOLE
     Dosage: 200 MG ALTERNATING WITH 300 MG DAILY
     Route: 048
     Dates: start: 20181127, end: 20181130
  7. POSACONAZOLE [Suspect]
     Active Substance: POSACONAZOLE
     Indication: BRONCHOPULMONARY ASPERGILLOSIS
     Dosage: 300 MG DAILY
     Route: 048
     Dates: start: 201509, end: 201704
  8. POSACONAZOLE [Suspect]
     Active Substance: POSACONAZOLE
     Dosage: 200 MG DAILY
     Route: 048
     Dates: start: 201809, end: 20181023
  9. POSACONAZOLE [Suspect]
     Active Substance: POSACONAZOLE
     Indication: BRONCHOPULMONARY ASPERGILLOSIS
     Dosage: 200 MILLIGRAM, QID
     Route: 048
     Dates: start: 201406, end: 201508

REACTIONS (5)
  - Neurotoxicity [Recovered/Resolved]
  - Neurotoxicity [Recovered/Resolved]
  - Delirium [Recovered/Resolved]
  - Off label use [Unknown]
  - Delirium [Recovered/Resolved]

NARRATIVE: CASE EVENT DATE: 20170508
